FAERS Safety Report 7817466-7 (Version None)
Quarter: 2011Q4

REPORT INFORMATION
  Report Type: 
  Country: None (occurrence: None)
  Receive Date: 20111017
  Receipt Date: 20111003
  Transmission Date: 20120403
  Serious: Yes (Hospitalization, Disabling, Other)
  Sender: FDA-Public Use
  Company Number: JP-UCBSA-042537

PATIENT
  Age: 75 Year
  Sex: Male

DRUGS (14)
  1. OLOPATADINE HCL [Concomitant]
     Route: 048
     Dates: start: 20110902
  2. MUCOSTA [Concomitant]
     Route: 048
     Dates: start: 20110901
  3. CEFAZOLIN SODIUM [Concomitant]
     Dosage: DOSAGE FORM: POWDER
     Route: 048
     Dates: start: 20110901
  4. METHADERM [Concomitant]
     Route: 061
     Dates: start: 20110902
  5. FERRUM [Concomitant]
     Route: 048
     Dates: start: 20110901
  6. XYZAL [Suspect]
     Indication: URTICARIA
     Route: 048
     Dates: start: 20110902, end: 20110920
  7. TRANEXAMIC ACID [Concomitant]
     Route: 048
     Dates: start: 20110901
  8. XYZAL [Suspect]
     Indication: RASH
     Route: 048
     Dates: start: 20110902, end: 20110920
  9. BIO-THREE [Concomitant]
     Route: 048
     Dates: start: 20110901
  10. DISOPYRAMIDE [Concomitant]
     Route: 048
     Dates: start: 20110901
  11. ADONA [Concomitant]
     Route: 048
     Dates: start: 20110901
  12. CYTOTEC [Concomitant]
     Route: 048
     Dates: start: 20110901
  13. RABEPRAZOLE SODIUM [Concomitant]
     Route: 048
     Dates: start: 20110901
  14. HIRUDOID [Concomitant]
     Route: 061
     Dates: start: 20110902

REACTIONS (14)
  - JAW DISORDER [None]
  - PARALYSIS [None]
  - VIITH NERVE PARALYSIS [None]
  - APRAXIA [None]
  - TENDERNESS [None]
  - CRANIAL NERVE PALSIES MULTIPLE [None]
  - TEMPOROMANDIBULAR JOINT SYNDROME [None]
  - DYSPHAGIA [None]
  - TRISMUS [None]
  - HEADACHE [None]
  - HYPOTONIA [None]
  - HYPOAESTHESIA [None]
  - NEUROSIS [None]
  - SPEECH DISORDER [None]
